FAERS Safety Report 5918498-6 (Version None)
Quarter: 2008Q4

REPORT INFORMATION
  Report Type: 
  Country: None (occurrence: None)
  Receive Date: 20081014
  Receipt Date: 20081014
  Transmission Date: 20090506
  Serious: Yes (Death)
  Sender: FDA-Public Use
  Company Number: None

PATIENT
  Sex: Female

DRUGS (13)
  1. REVLIMID [Suspect]
     Dosage: 10MG DAILY 21D/28D ORAL, 1-2 WEEKS
     Route: 048
  2. VICODIN [Concomitant]
  3. PROCRIT [Concomitant]
  4. LEVOTHROID [Concomitant]
  5. LISINOPRIL [Concomitant]
  6. DIGITEK [Concomitant]
  7. ATENOLOL [Concomitant]
  8. CITALOPRAM HYDROBROMIDE [Concomitant]
  9. VITAMIN D [Concomitant]
  10. CALCIUM [Concomitant]
  11. ARIMEDEX [Concomitant]
  12. MAGNESIUM SULFATE [Concomitant]
  13. AMITRIPTYLINE HCL [Concomitant]

REACTIONS (5)
  - DISEASE PROGRESSION [None]
  - MYELODYSPLASTIC SYNDROME [None]
  - MYELOFIBROSIS [None]
  - REFUSAL OF TREATMENT BY RELATIVE [None]
  - TREATMENT FAILURE [None]
